FAERS Safety Report 9767091 (Version 1)
Quarter: 2013Q4

REPORT INFORMATION
  Report Type: Spontaneous
  Country: US (occurrence: US)
  Receive Date: 20131217
  Receipt Date: 20131217
  Transmission Date: 20140711
  Serious: No
  Sender: FDA-Public Use
  Company Number: US-GLAXOSMITHKLINE-A1039005A

PATIENT
  Age: 38 Year
  Sex: Female

DRUGS (6)
  1. VOTRIENT [Suspect]
     Indication: MALIGNANT URINARY TRACT NEOPLASM
     Dosage: 800MG PER DAY
     Route: 048
     Dates: start: 20130701
  2. AMLODIPINE [Concomitant]
  3. OXYCODONE [Concomitant]
  4. FENTANYL [Concomitant]
  5. LOPERAMIDE [Concomitant]
  6. MVI [Concomitant]

REACTIONS (2)
  - Diarrhoea [Unknown]
  - Treatment failure [Unknown]
